FAERS Safety Report 17129189 (Version 1)
Quarter: 2019Q4

REPORT INFORMATION
  Report Type: Spontaneous
  Country: US (occurrence: US)
  Receive Date: 20191208
  Receipt Date: 20191208
  Transmission Date: 20200122
  Serious: No
  Sender: FDA-Public Use
  Company Number: None

PATIENT
  Age: 26 Year
  Sex: Female
  Weight: 45 kg

DRUGS (2)
  1. BUPROPION HCL SR 100 MG [Suspect]
     Active Substance: BUPROPION HYDROCHLORIDE
     Indication: DEPRESSION
     Dosage: ?          QUANTITY:1 TABLET(S);?
     Route: 048
     Dates: start: 20191127
  2. PROGESTERONE ONLY BIRTH CONTROL; MINI PILL [Concomitant]
     Active Substance: PROGESTERONE

REACTIONS (5)
  - Headache [None]
  - Suicidal ideation [None]
  - Abdominal discomfort [None]
  - Depression [None]
  - Anxiety [None]

NARRATIVE: CASE EVENT DATE: 20191204
